FAERS Safety Report 15753183 (Version 1)
Quarter: 2018Q4

REPORT INFORMATION
  Report Type: Spontaneous
  Country: US (occurrence: US)
  Receive Date: 20181222
  Receipt Date: 20181222
  Transmission Date: 20190205
  Serious: Yes (Hospitalization)
  Sender: FDA-Public Use
  Company Number: US-JNJFOC-20181210652

PATIENT
  Age: 64 Year
  Sex: Male

DRUGS (1)
  1. INVOKAMET [Suspect]
     Active Substance: CANAGLIFLOZIN\METFORMIN HYDROCHLORIDE
     Indication: TYPE 2 DIABETES MELLITUS
     Dosage: 50 MG TO 1000 MG
     Route: 048
     Dates: start: 20161212, end: 20170713

REACTIONS (1)
  - Limb amputation [Unknown]

NARRATIVE: CASE EVENT DATE: 20170719
